FAERS Safety Report 5259696-7 (Version None)
Quarter: 2007Q1

REPORT INFORMATION
  Report Type: 
  Country: None (occurrence: None)
  Receive Date: 20070309
  Receipt Date: 20070212
  Transmission Date: 20070707
  Serious: Yes (Hospitalization)
  Sender: FDA-Public Use
  Company Number: FR-BRISTOL-MYERS SQUIBB COMPANY-13704994

PATIENT
  Age: 78 Year
  Sex: Female

DRUGS (7)
  1. GLUCOPHAGE [Suspect]
     Indication: DIABETES MELLITUS
     Route: 048
     Dates: end: 20060830
  2. FOZITEC TABS 10 MG [Suspect]
     Indication: ESSENTIAL HYPERTENSION
     Route: 048
     Dates: end: 20060830
  3. DIAMICRON [Suspect]
     Indication: DIABETES MELLITUS
     Route: 048
     Dates: end: 20060830
  4. AUGMENTIN [Suspect]
     Route: 042
     Dates: start: 20060827, end: 20060831
  5. AMARYL [Suspect]
     Indication: DIABETES MELLITUS
     Route: 048
     Dates: end: 20060830
  6. OFLOCET [Suspect]
     Route: 042
     Dates: start: 20060828, end: 20060829
  7. AMLODIPINE [Suspect]
     Indication: ESSENTIAL HYPERTENSION
     Route: 048
     Dates: end: 20060903

REACTIONS (1)
  - RENAL FAILURE ACUTE [None]
